FAERS Safety Report 18910520 (Version 1)
Quarter: 2021Q1

REPORT INFORMATION
  Report Type: Spontaneous
  Country: US (occurrence: US)
  Receive Date: 20210218
  Receipt Date: 20210218
  Transmission Date: 20210420
  Serious: No
  Sender: FDA-Public Use
  Company Number: None

PATIENT
  Age: 80 Year
  Sex: Female
  Weight: 100.4 kg

DRUGS (13)
  1. VITAMIN B12 [Concomitant]
     Active Substance: CYANOCOBALAMIN
  2. VITAMIN C [Concomitant]
     Active Substance: ASCORBIC ACID
  3. AMLODIPINE BESYLATE. [Concomitant]
     Active Substance: AMLODIPINE BESYLATE
  4. FAMOTIDINE. [Concomitant]
     Active Substance: FAMOTIDINE
  5. DIAZEPAM. [Concomitant]
     Active Substance: DIAZEPAM
  6. LEVOTHYROXINE. [Concomitant]
     Active Substance: LEVOTHYROXINE
  7. LINZESS [Concomitant]
     Active Substance: LINACLOTIDE
  8. DULOXETINE HCL [Concomitant]
     Active Substance: DULOXETINE HYDROCHLORIDE
  9. ASPIRIN 81 [Concomitant]
     Active Substance: ASPIRIN
  10. KEPPRA [Concomitant]
     Active Substance: LEVETIRACETAM
  11. VERZENIO [Suspect]
     Active Substance: ABEMACICLIB
     Indication: BREAST CANCER
     Route: 048
     Dates: start: 20201229, end: 20210218
  12. VALSARTAN?HYDROCHLOROTHIAZIDE [Concomitant]
     Active Substance: HYDROCHLOROTHIAZIDE\VALSARTAN
  13. CALCIUM 600 [Concomitant]
     Active Substance: CALCIUM

REACTIONS (5)
  - Disorientation [None]
  - Decreased appetite [None]
  - Fatigue [None]
  - Fall [None]
  - Constipation [None]

NARRATIVE: CASE EVENT DATE: 20210218
